FAERS Safety Report 8122217-5 (Version None)
Quarter: 2012Q1

REPORT INFORMATION
  Report Type: 
  Country: None (occurrence: None)
  Receive Date: 20120208
  Receipt Date: 20120206
  Transmission Date: 20120608
  Serious: Yes (Life-Threatening)
  Sender: FDA-Public Use
  Company Number: FR-B.I. PHARMACEUTICALS,INC./RIDGEFIELD-2012-FF-00138FF

PATIENT
  Sex: Male
  Weight: 85 kg

DRUGS (4)
  1. MORPHINE [Concomitant]
  2. PRADAXA [Suspect]
     Indication: HIP ARTHROPLASTY
     Dosage: 220 MG
     Route: 048
     Dates: start: 20111208, end: 20111210
  3. ACETAMINOPHEN [Concomitant]
  4. KETOPROFEN [Concomitant]

REACTIONS (4)
  - EPISTAXIS [None]
  - AGEUSIA [None]
  - ANOSMIA [None]
  - THROMBOCYTOPENIA [None]
